FAERS Safety Report 4974004-4 (Version None)
Quarter: 2006Q2

REPORT INFORMATION
  Report Type: 
  Country: None (occurrence: None)
  Receive Date: 20060410
  Receipt Date: 20060330
  Transmission Date: 20061013
  Serious: Yes (Congenital Anomaly)
  Sender: FDA-Public Use
  Company Number: HQWYE599931MAR06

PATIENT

DRUGS (9)
  1. EFFEXOR XR [Suspect]
     Indication: ANXIETY
     Dosage: 150 MG 1X PER 1 DAY, TRANSPLACENTAL ; 225 MG 1X PER 1 DAY, TRANSPLACENTAL ; 150 MG 1X PER 1 DAY, TRA
     Route: 064
     Dates: start: 20050701, end: 20050101
  2. EFFEXOR XR [Suspect]
     Indication: DEPRESSION
     Dosage: 150 MG 1X PER 1 DAY, TRANSPLACENTAL ; 225 MG 1X PER 1 DAY, TRANSPLACENTAL ; 150 MG 1X PER 1 DAY, TRA
     Route: 064
     Dates: start: 20050701, end: 20050101
  3. EFFEXOR XR [Suspect]
     Indication: ANXIETY
     Dosage: 150 MG 1X PER 1 DAY, TRANSPLACENTAL ; 225 MG 1X PER 1 DAY, TRANSPLACENTAL ; 150 MG 1X PER 1 DAY, TRA
     Route: 064
     Dates: start: 20030101, end: 20050701
  4. EFFEXOR XR [Suspect]
     Indication: DEPRESSION
     Dosage: 150 MG 1X PER 1 DAY, TRANSPLACENTAL ; 225 MG 1X PER 1 DAY, TRANSPLACENTAL ; 150 MG 1X PER 1 DAY, TRA
     Route: 064
     Dates: start: 20030101, end: 20050701
  5. EFFEXOR XR [Suspect]
     Indication: ANXIETY
     Dosage: 150 MG 1X PER 1 DAY, TRANSPLACENTAL ; 225 MG 1X PER 1 DAY, TRANSPLACENTAL ; 150 MG 1X PER 1 DAY, TRA
     Route: 064
     Dates: start: 20050101
  6. EFFEXOR XR [Suspect]
     Indication: DEPRESSION
     Dosage: 150 MG 1X PER 1 DAY, TRANSPLACENTAL ; 225 MG 1X PER 1 DAY, TRANSPLACENTAL ; 150 MG 1X PER 1 DAY, TRA
     Route: 064
     Dates: start: 20050101
  7. LAMICTAL [Concomitant]
  8. ... [Concomitant]
  9. ... [Concomitant]

REACTIONS (3)
  - DRUG EXPOSURE DURING PREGNANCY [None]
  - TRANSPOSITION OF THE GREAT VESSELS [None]
  - VENTRICULAR SEPTAL DEFECT [None]
